FAERS Safety Report 9671939 (Version 1)
Quarter: 2013Q4

REPORT INFORMATION
  Report Type: Spontaneous
  Country: TR (occurrence: None)
  Receive Date: 20131104
  Receipt Date: 20131104
  Transmission Date: 20140711
  Serious: Yes (Hospitalization)
  Sender: FDA-Public Use
  Company Number: 2013P1020497

PATIENT
  Age: 10 Month
  Sex: Female
  Weight: 10 kg

DRUGS (5)
  1. LEVETIRACETAM [Suspect]
     Indication: EPILEPSY
  2. VIGABATRIN [Concomitant]
  3. TOPIRAMATE [Concomitant]
  4. CALCIUM FOLINATE [Concomitant]
  5. VITAMIN B6 [Concomitant]

REACTIONS (5)
  - Somnolence [None]
  - Apathy [None]
  - Hypotonia [None]
  - Accidental overdose [None]
  - Heart rate increased [None]
